FAERS Safety Report 9334416 (Version 1)
Quarter: 2013Q2

REPORT INFORMATION
  Report Type: Spontaneous
  Country: US (occurrence: US)
  Receive Date: 20130606
  Receipt Date: 20130606
  Transmission Date: 20140414
  Serious: No
  Sender: FDA-Public Use
  Company Number: US-AMGEN-USASP2013019462

PATIENT
  Age: 63 Year
  Sex: Female

DRUGS (3)
  1. PROLIA [Suspect]
     Indication: OSTEOPOROSIS POSTMENOPAUSAL
     Dosage: UNK
     Dates: start: 201203
  2. PROLIA [Suspect]
  3. SYNTHROID [Concomitant]
     Indication: HYPOTHYROIDISM

REACTIONS (5)
  - Blood cholesterol increased [Unknown]
  - Arthralgia [Unknown]
  - Nasopharyngitis [Unknown]
  - Throat irritation [Unknown]
  - Pain in extremity [Not Recovered/Not Resolved]
